FAERS Safety Report 16557228 (Version 1)
Quarter: 2019Q3

REPORT INFORMATION
  Report Type: Spontaneous
  Country: US (occurrence: US)
  Receive Date: 20190711
  Receipt Date: 20190711
  Transmission Date: 20191004
  Serious: No
  Sender: FDA-Public Use
  Company Number: US-DRREDDYS-USA/USA/18/0100524

PATIENT
  Age: 20 Year
  Sex: Female
  Weight: 59.09 kg

DRUGS (6)
  1. TACROLIMUS CAPSULES [Suspect]
     Active Substance: TACROLIMUS
     Route: 065
  2. TACROLIMUS CAPSULES [Suspect]
     Active Substance: TACROLIMUS
  3. TYLENOL [Concomitant]
     Active Substance: ACETAMINOPHEN
     Indication: DYSMENORRHOEA
     Route: 065
  4. TACROLIMUS CAPSULES [Suspect]
     Active Substance: TACROLIMUS
     Dates: start: 201805
  5. TACROLIMUS CAPSULES [Suspect]
     Active Substance: TACROLIMUS
     Indication: NEPHROTIC SYNDROME
     Dates: start: 201805
  6. IBUPROFEN. [Concomitant]
     Active Substance: IBUPROFEN
     Indication: DYSMENORRHOEA
     Route: 065

REACTIONS (4)
  - Drug level increased [Unknown]
  - Product complaint [Unknown]
  - Protein total decreased [Recovered/Resolved]
  - Swelling [Unknown]
